FAERS Safety Report 23832515 (Version 2)
Quarter: 2024Q4

REPORT INFORMATION
  Report Type: Spontaneous
  Country: US (occurrence: US)
  Receive Date: 20240508
  Receipt Date: 20241110
  Transmission Date: 20250114
  Serious: No
  Sender: SANOFI AVENTIS
  Company Number: US-SA-SAC20240429000681

PATIENT
  Age: 57 Year
  Sex: Female

DRUGS (2)
  1. DUPIXENT [Suspect]
     Active Substance: DUPILUMAB
     Indication: Asthma
     Dosage: 600MG 1X
     Route: 058
     Dates: start: 20240225, end: 20240225
  2. DUPIXENT [Suspect]
     Active Substance: DUPILUMAB
     Dosage: 300 MG, QOW
     Route: 058
     Dates: start: 202403, end: 202405

REACTIONS (3)
  - Nasopharyngitis [Unknown]
  - Asthma [Unknown]
  - Drug ineffective [Unknown]

NARRATIVE: CASE EVENT DATE: 20240101
